FAERS Safety Report 9138221 (Version 1)
Quarter: 2013Q1

REPORT INFORMATION
  Report Type: Spontaneous
  Country: US (occurrence: US)
  Receive Date: 20130305
  Receipt Date: 20130305
  Transmission Date: 20140127
  Serious: Yes (Other)
  Sender: FDA-Public Use
  Company Number: US-AMGEN-USASP2013014188

PATIENT
  Age: 67 Year
  Sex: Female

DRUGS (1)
  1. ENBREL [Suspect]
     Indication: PSORIASIS
     Dosage: 50 MG, 2 TIMES/WK
     Dates: start: 2007

REACTIONS (4)
  - Visual field defect [Not Recovered/Not Resolved]
  - Cataract [Recovered/Resolved]
  - Photophobia [Not Recovered/Not Resolved]
  - Psoriasis [Not Recovered/Not Resolved]
